FAERS Safety Report 24992965 (Version 2)
Quarter: 2025Q1

REPORT INFORMATION
  Report Type: Report from Study
  Country: US (occurrence: US)
  Receive Date: 20250221
  Receipt Date: 20250227
  Transmission Date: 20250408
  Serious: Yes (Hospitalization, Other)
  Sender: JOHNSON AND JOHNSON
  Company Number: US-JNJFOC-20250215744

PATIENT
  Age: 71 Year
  Sex: Male

DRUGS (2)
  1. TECVAYLI [Suspect]
     Active Substance: TECLISTAMAB-CQYV
     Indication: Plasma cell myeloma
     Route: 065
  2. TECVAYLI [Suspect]
     Active Substance: TECLISTAMAB-CQYV
     Route: 065
     Dates: start: 20250124

REACTIONS (11)
  - Cardiac arrest [Unknown]
  - Brain injury [Unknown]
  - Renal disorder [Unknown]
  - Organ failure [Unknown]
  - Brain stem syndrome [Unknown]
  - Hypoxia [Unknown]
  - Arrhythmia [Unknown]
  - Neurotoxicity [Unknown]
  - Brain oedema [Unknown]
  - Hypotension [Unknown]
  - Hepatic enzyme increased [Unknown]

NARRATIVE: CASE EVENT DATE: 20250128
